FAERS Safety Report 23950285 (Version 3)
Quarter: 2024Q3

REPORT INFORMATION
  Report Type: Spontaneous
  Country: US (occurrence: US)
  Receive Date: 20240607
  Receipt Date: 20240715
  Transmission Date: 20241017
  Serious: Yes (Other)
  Sender: REGENERON
  Company Number: US-REGENERON PHARMACEUTICALS, INC.-2024-081018

PATIENT
  Sex: Female

DRUGS (4)
  1. PRALUENT [Suspect]
     Active Substance: ALIROCUMAB
     Indication: Hypercholesterolaemia
     Dosage: 75 MG, Q2W
     Route: 058
     Dates: start: 20240428
  2. PRALUENT [Suspect]
     Active Substance: ALIROCUMAB
     Dosage: 75 MG EVERY TWO AND HALF TO THREE WEEKS
     Route: 058
     Dates: start: 20240519, end: 20240519
  3. LEVOTHYROXINE [Concomitant]
     Active Substance: LEVOTHYROXINE\LEVOTHYROXINE SODIUM
     Indication: Hypothyroidism
     Dosage: 50 UG, QD
     Route: 065
  4. HYDROCHLOROTHIAZIDE [Concomitant]
     Active Substance: HYDROCHLOROTHIAZIDE
     Indication: Hypertension
     Dosage: 125 MG, QD
     Route: 065

REACTIONS (18)
  - Lower respiratory tract infection [Unknown]
  - Lower respiratory tract infection [Unknown]
  - Malaise [Unknown]
  - Gait disturbance [Unknown]
  - Fatigue [Unknown]
  - Nasopharyngitis [Recovered/Resolved]
  - Oropharyngeal pain [Unknown]
  - Rhinorrhoea [Unknown]
  - Chest discomfort [Unknown]
  - Cough [Unknown]
  - Lacrimation increased [Unknown]
  - Illness [Unknown]
  - Drug intolerance [Unknown]
  - Nasopharyngitis [Recovered/Resolved]
  - Nasal congestion [Recovering/Resolving]
  - Fatigue [Unknown]
  - Oropharyngeal pain [Unknown]
  - Sinusitis [Unknown]

NARRATIVE: CASE EVENT DATE: 20240101
